FAERS Safety Report 5108920-X (Version None)
Quarter: 2006Q3

REPORT INFORMATION
  Report Type: 
  Country: None (occurrence: None)
  Receive Date: 20060920
  Receipt Date: 20060830
  Transmission Date: 20061208
  Serious: Yes (Disabling, Other)
  Sender: FDA-Public Use
  Company Number: JP-BRISTOL-MYERS SQUIBB COMPANY-13504014

PATIENT
  Age: 28 Year
  Sex: Male

DRUGS (3)
  1. BLEOMYCIN [Suspect]
     Indication: TESTIS CANCER
     Route: 042
  2. LASTET [Suspect]
     Route: 042
  3. RANDA [Suspect]
     Route: 042

REACTIONS (1)
  - DEEP VEIN THROMBOSIS [None]
